FAERS Safety Report 9448462 (Version 1)
Quarter: 2013Q3

REPORT INFORMATION
  Report Type: Spontaneous
  Country: JP (occurrence: None)
  Receive Date: 20130806
  Receipt Date: 20130806
  Transmission Date: 20140515
  Serious: Yes (Other)
  Sender: FDA-Public Use
  Company Number: PHEB20130007

PATIENT
  Age: 69 Year
  Sex: Male

DRUGS (1)
  1. PHENOBARBITAL [Suspect]
     Indication: EPILEPSY

REACTIONS (3)
  - Drug reaction with eosinophilia and systemic symptoms [None]
  - Encephalitis [None]
  - Inappropriate antidiuretic hormone secretion [None]
